FAERS Safety Report 5639546-7 (Version None)
Quarter: 2008Q1

REPORT INFORMATION
  Report Type: 
  Country: None (occurrence: None)
  Receive Date: 20080226
  Receipt Date: 20080218
  Transmission Date: 20080703
  Serious: Yes (Other)
  Sender: FDA-Public Use
  Company Number: JP-MERCK-0802USA04804

PATIENT

DRUGS (1)
  1. PEPCID [Suspect]
     Route: 048

REACTIONS (1)
  - THROMBOTIC THROMBOCYTOPENIC PURPURA [None]
